FAERS Safety Report 9722811 (Version 3)
Quarter: 2013Q4

REPORT INFORMATION
  Report Type: Spontaneous
  Country: US (occurrence: US)
  Receive Date: 20131202
  Receipt Date: 20131210
  Transmission Date: 20140711
  Serious: Yes (Other)
  Sender: FDA-Public Use
  Company Number: US-BANPHARM-20131898

PATIENT
  Age: 65 Year
  Sex: Female
  Weight: 64.41 kg

DRUGS (4)
  1. ALEVE LIQUID GELS 220 MG [Suspect]
     Dosage: 2 DF, PRN,
     Route: 048
  2. ALDACTONE 25 MG [Concomitant]
  3. ZETIA 20 MG [Concomitant]
  4. FIORINAL [Concomitant]

REACTIONS (3)
  - Gastric ulcer [Recovered/Resolved]
  - Haemorrhage [Recovered/Resolved]
  - Incorrect dose administered [Unknown]
